FAERS Safety Report 20132840 (Version 4)
Quarter: 2022Q1

REPORT INFORMATION
  Report Type: Spontaneous
  Country: US (occurrence: US)
  Receive Date: 20211130
  Receipt Date: 20220106
  Transmission Date: 20220423
  Serious: Yes (Other)
  Sender: FDA-Public Use
  Company Number: US-BEH-2021138776

PATIENT
  Age: 56 Year
  Sex: Female

DRUGS (2)
  1. PRIVIGEN [Suspect]
     Active Substance: HUMAN IMMUNOGLOBULIN G
     Indication: Blood immunoglobulin G
     Dosage: 30 GRAM, QMT
     Route: 042
     Dates: start: 20210827
  2. PRIVIGEN [Suspect]
     Active Substance: HUMAN IMMUNOGLOBULIN G
     Dosage: 10 GRAM, QMT
     Route: 042

REACTIONS (5)
  - Hepatitis B [Recovering/Resolving]
  - Suspected transmission of an infectious agent via product [Unknown]
  - No adverse event [Unknown]
  - Recalled product administered [Unknown]
  - Hepatitis B antibody positive [Unknown]

NARRATIVE: CASE EVENT DATE: 20211104
